FAERS Safety Report 6424522-7 (Version None)
Quarter: 2009Q4

REPORT INFORMATION
  Report Type: 
  Country: None (occurrence: None)
  Receive Date: 20091103
  Receipt Date: 20091027
  Transmission Date: 20100525
  Serious: Yes (Death, Hospitalization)
  Sender: FDA-Public Use
  Company Number: CA-CELGENEUS-028-21880-09102184

PATIENT
  Sex: Female
  Weight: 56.1 kg

DRUGS (1)
  1. REVLIMID [Suspect]
     Route: 048
     Dates: start: 20090715, end: 20091025

REACTIONS (3)
  - DISEASE PROGRESSION [None]
  - DYSPNOEA [None]
  - JAUNDICE [None]
